FAERS Safety Report 17419721 (Version 1)
Quarter: 2020Q1

REPORT INFORMATION
  Report Type: Spontaneous
  Country: US (occurrence: US)
  Receive Date: 20200214
  Receipt Date: 20200214
  Transmission Date: 20200409
  Serious: Yes (Death, Life-Threatening, Hospitalization)
  Sender: FDA-Public Use
  Company Number: None

PATIENT
  Age: 82 Year
  Sex: Male
  Weight: 77 kg

DRUGS (19)
  1. APIXABAN [Suspect]
     Active Substance: APIXABAN
     Route: 048
  2. ASPIRIN 81 MG [Concomitant]
     Active Substance: ASPIRIN
  3. LORAZEPAM 0.5 MG [Concomitant]
     Active Substance: LORAZEPAM
  4. FINASTERIDE 5 MG [Concomitant]
     Active Substance: FINASTERIDE
  5. FLUTICASONE 50 MCG NASAL SPRAY [Concomitant]
  6. OMEGA 3 [Concomitant]
     Active Substance: OMEGA-3 FATTY ACIDS
  7. LIDOCAINE 5% PATCH [Concomitant]
     Active Substance: LIDOCAINE
  8. PANTOPRAZOLE 40 MG [Concomitant]
     Active Substance: PANTOPRAZOLE SODIUM
  9. CHOLECALCIFEROL 1000 UNITS [Concomitant]
  10. CONENZYME Q 10 [Concomitant]
  11. GLIMIPERIDE 1 MG [Concomitant]
  12. CELECOXIB 200 MG [Concomitant]
     Active Substance: CELECOXIB
  13. DICLOFENAC 1% GEL [Concomitant]
     Active Substance: DICLOFENAC
  14. ACETAMINOPHEN 650 MGCR [Concomitant]
  15. GARLIC 1000 MG [Concomitant]
  16. ALBUTEROL INHALER [Concomitant]
     Active Substance: ALBUTEROL
  17. DULOXETINE 20 MG [Concomitant]
     Active Substance: DULOXETINE
  18. OSTEO BIOFLEX [Concomitant]
  19. TRIAMCINOLONE 0.1% LOTION [Concomitant]

REACTIONS (6)
  - Gastrointestinal haemorrhage [None]
  - Haemorrhage intracranial [None]
  - Anaemia [None]
  - Depressed level of consciousness [None]
  - Pulmonary embolism [None]
  - Hypotension [None]

NARRATIVE: CASE EVENT DATE: 20191018
